FAERS Safety Report 11058576 (Version 1)
Quarter: 2015Q2

REPORT INFORMATION
  Report Type: Spontaneous
  Country: US (occurrence: None)
  Receive Date: 20150422
  Receipt Date: 20150422
  Transmission Date: 20150821
  Serious: Yes (Life-Threatening)
  Sender: FDA-Public Use
  Company Number: None

PATIENT
  Age: 68 Year
  Sex: Male
  Weight: 103.6 kg

DRUGS (1)
  1. PIOGLITAZONE [Suspect]
     Active Substance: PIOGLITAZONE
     Indication: DIABETES MELLITUS
     Dosage: 30 MG, EVERY DAY, PO?
     Route: 048
     Dates: start: 20100210, end: 20141212

REACTIONS (3)
  - Bladder neoplasm [None]
  - Dyspnoea [None]
  - Haematuria [None]

NARRATIVE: CASE EVENT DATE: 20141204
